FAERS Safety Report 14260254 (Version 1)
Quarter: 2017Q4

REPORT INFORMATION
  Report Type: Report from Study
  Country: US (occurrence: US)
  Receive Date: 20171207
  Receipt Date: 20171207
  Transmission Date: 20180321
  Serious: Yes (Hospitalization)
  Sender: FDA-Public Use
  Company Number: US-CELGENEUS-USA-20170705798

PATIENT
  Age: 50 Year
  Sex: Male
  Weight: 74.9 kg

DRUGS (4)
  1. POMALYST [Suspect]
     Active Substance: POMALIDOMIDE
     Dosage: 2MG-5MG
     Route: 048
     Dates: start: 201608
  2. POMALYST [Suspect]
     Active Substance: POMALIDOMIDE
     Dosage: 3 MILLIGRAM
     Route: 048
     Dates: start: 201706
  3. POMALYST [Suspect]
     Active Substance: POMALIDOMIDE
     Indication: HEREDITARY HAEMORRHAGIC TELANGIECTASIA
     Dosage: 1 MILLIGRAM
     Route: 048
     Dates: start: 201607
  4. POMALYST [Suspect]
     Active Substance: POMALIDOMIDE
     Dosage: 3MG-1MG
     Route: 048
     Dates: start: 201701

REACTIONS (2)
  - Seizure [Unknown]
  - Infected cyst [Unknown]

NARRATIVE: CASE EVENT DATE: 20170712
